FAERS Safety Report 14864342 (Version 3)
Quarter: 2018Q2

REPORT INFORMATION
  Report Type: Spontaneous
  Country: IN (occurrence: IN)
  Receive Date: 20180508
  Receipt Date: 20180608
  Transmission Date: 20180711
  Serious: Yes (Life-Threatening, Hospitalization)
  Sender: FDA-Public Use
  Company Number: IN-PFIZER INC-2018182662

PATIENT
  Age: 53 Year
  Sex: Male

DRUGS (8)
  1. DOXORUBICIN HCL [Suspect]
     Active Substance: DOXORUBICIN HYDROCHLORIDE
     Indication: MANTLE CELL LYMPHOMA
     Dosage: UNK, CYCLIC (PLANNED FOR 6 CYCLES CHEMOTHERAPY WITH R-CHOP ALTERNATING WITH R-DHAP)
  2. DEXAMETHASONE. [Suspect]
     Active Substance: DEXAMETHASONE
     Indication: MANTLE CELL LYMPHOMA
     Dosage: UNK, CYCLIC (PLANNED FOR 6 CYCLES CHEMOTHERAPY WITH R-CHOP ALTERNATING WITH R-DHAP)
  3. PREDNISOLONE. [Suspect]
     Active Substance: PREDNISOLONE
     Indication: MANTLE CELL LYMPHOMA
     Dosage: UNK, CYCLIC (PLANNED FOR 6 CYCLES CHEMOTHERAPY WITH R-CHOP ALTERNATING WITH R-DHAP)
  4. CYCLOPHOSPHAMIDE. [Suspect]
     Active Substance: CYCLOPHOSPHAMIDE
     Indication: MANTLE CELL LYMPHOMA
     Dosage: UNK, CYCLIC (PLANNED FOR 6 CYCLES CHEMOTHERAPY WITH R-CHOP ALTERNATING WITH R-DHAP)
  5. CYTARABINE. [Suspect]
     Active Substance: CYTARABINE
     Indication: MANTLE CELL LYMPHOMA
     Dosage: UNK, CYCLIC (PLANNED FOR 6 CYCLES CHEMOTHERAPY WITH R-CHOP ALTERNATING WITH R-DHAP)
  6. RITUXIMAB. [Suspect]
     Active Substance: RITUXIMAB
     Indication: MANTLE CELL LYMPHOMA
     Dosage: UNK, CYCLIC (PLANNED FOR 6 CYCLES CHEMOTHERAPY WITH R-CHOP ALTERNATING WITH R-DHAP)
  7. CISPLATIN. [Suspect]
     Active Substance: CISPLATIN
     Indication: MANTLE CELL LYMPHOMA
     Dosage: UNK, CYCLIC (PLANNED FOR 6 CYCLES CHEMOTHERAPY WITH R-CHOP ALTERNATING WITH R-DHAP)
  8. VINCRISTINE [Suspect]
     Active Substance: VINCRISTINE
     Indication: MANTLE CELL LYMPHOMA
     Dosage: UNK, CYCLIC (PLANNED FOR 6 CYCLES CHEMOTHERAPY WITH R-CHOP ALTERNATING WITH R-DHAP)

REACTIONS (3)
  - Abdominal distension [Unknown]
  - Abdominal pain [Unknown]
  - Diarrhoea [Unknown]
